FAERS Safety Report 20845444 (Version 1)
Quarter: 2022Q2

REPORT INFORMATION
  Report Type: Spontaneous
  Country: ES (occurrence: ES)
  Receive Date: 20220518
  Receipt Date: 20220518
  Transmission Date: 20220720
  Serious: Yes (Other)
  Sender: FDA-Public Use
  Company Number: ES-MYLANLABS-2022M1036704

PATIENT
  Age: 68 Year
  Sex: Female

DRUGS (1)
  1. SUNITINIB [Suspect]
     Active Substance: SUNITINIB
     Indication: Papillary renal cell carcinoma
     Dosage: 37.5 MILLIGRAM, CYCLE, IN A 2/1 SCHEDULE; SHE RECEIVED 3 CYCLES
     Route: 065

REACTIONS (1)
  - Drug ineffective [Unknown]
